FAERS Safety Report 9525408 (Version 1)
Quarter: 2013Q1

REPORT INFORMATION
  Report Type: Spontaneous
  Country: US (occurrence: None)
  Receive Date: 20130314
  Receipt Date: 20130314
  Transmission Date: 20140127
  Serious: No
  Sender: FDA-Public Use
  Company Number: 1212USA010115

PATIENT
  Age: 56 Year
  Sex: Male
  Weight: 90.7 kg

DRUGS (10)
  1. VICTRELIS (BOCEPREVIR) CAPSULE, 200MG [Suspect]
     Indication: HEPATITIS C
     Dosage: 800 MG, TID (EVERY 7-9 HOURS), ORAL
     Route: 048
  2. PEGASYS (PEGINTERFERON ALFA-2A) INJECTION [Suspect]
     Indication: HEPATITIS C
     Route: 058
  3. PEGASYS (PEGINTERFERON ALFA-2A) INJECTION [Suspect]
     Route: 058
  4. RIBASPHERE (RIBAVIRIN) [Suspect]
     Indication: HEPATITIS C
     Route: 048
  5. AMLODIPINE (AMLODIPINE) TABLET [Concomitant]
  6. BENICAR (OLMESARTAN MEDOXOMIL) TABLET [Concomitant]
  7. GLIMEPRID (GLIMEPIRIDE) TABLET [Concomitant]
  8. PRILOSEC (OMEPRAZOLE) CAPSULE [Concomitant]
  9. CIALIS (TADALAFIL) TABLET [Concomitant]
  10. GLIPIZIDE (GLIPIZIDE) TABLET [Concomitant]

REACTIONS (6)
  - Fatigue [None]
  - Dysgeusia [None]
  - Chills [None]
  - Decreased appetite [None]
  - Nausea [None]
  - Vomiting [None]
